FAERS Safety Report 23841672 (Version 1)
Quarter: 2024Q2

REPORT INFORMATION
  Report Type: Spontaneous
  Country: CN (occurrence: CN)
  Receive Date: 20240510
  Receipt Date: 20240510
  Transmission Date: 20240716
  Serious: Yes (Hospitalization, Other)
  Sender: FDA-Public Use
  Company Number: CN-Accord-423465

PATIENT
  Age: 65 Year
  Sex: Male

DRUGS (3)
  1. LEUPROLIDE [Suspect]
     Active Substance: LEUPROLIDE
     Indication: Prostate cancer metastatic
     Dosage: MONTHLY SUSTAINED-RELEASE INJECTION?MICROSPHERES SUBCUTANEOUSLY AT 3.75 MG
     Route: 058
     Dates: start: 202212, end: 202302
  2. APALUTAMIDE [Suspect]
     Active Substance: APALUTAMIDE
     Indication: Prostate cancer metastatic
  3. LEUPROLIDE [Suspect]
     Active Substance: LEUPROLIDE
     Indication: Prostate cancer metastatic
     Dosage: SUSTAINED-RELEASE INJECTION
     Route: 058
     Dates: start: 202303

REACTIONS (1)
  - Organising pneumonia [Recovered/Resolved]
